FAERS Safety Report 6138379-5 (Version None)
Quarter: 2009Q1

REPORT INFORMATION
  Report Type: 
  Country: None (occurrence: None)
  Receive Date: 20090327
  Receipt Date: 20090327
  Transmission Date: 20090719
  Serious: Yes (Other)
  Sender: FDA-Public Use
  Company Number: None

PATIENT
  Age: 65 Year
  Sex: Male
  Weight: 99.7 kg

DRUGS (3)
  1. CARBOPLATIN [Suspect]
     Indication: SMALL CELL LUNG CANCER STAGE UNSPECIFIED
     Dosage: AUC 6 -610 MG THIS DAY Q21D IV DRIP
     Route: 041
     Dates: start: 20081203, end: 20090204
  2. DEXAMETHASONE TAB [Concomitant]
  3. ALOXI [Concomitant]

REACTIONS (6)
  - DYSPHAGIA [None]
  - DYSPNOEA [None]
  - HYPERTENSIVE CRISIS [None]
  - HYPOAESTHESIA ORAL [None]
  - INFUSION RELATED REACTION [None]
  - NEUROLOGICAL SYMPTOM [None]
